FAERS Safety Report 8104434-3 (Version None)
Quarter: 2012Q1

REPORT INFORMATION
  Report Type: 
  Country: None (occurrence: None)
  Receive Date: 20120130
  Receipt Date: 20120116
  Transmission Date: 20120608
  Serious: Yes (Other)
  Sender: FDA-Public Use
  Company Number: CA-JNJFOC-20120111855

PATIENT
  Sex: Female
  Weight: 52 kg

DRUGS (2)
  1. REMICADE [Suspect]
     Indication: PRODUCT USED FOR UNKNOWN INDICATION
     Dosage: REINTRODUCTED TODAY 0-2-6 WEEKS
     Route: 042
     Dates: start: 20120116
  2. REMICADE [Suspect]
     Route: 042
     Dates: start: 20080917

REACTIONS (1)
  - JOINT DISLOCATION [None]
